FAERS Safety Report 12889724 (Version 1)
Quarter: 2016Q4

REPORT INFORMATION
  Report Type: Spontaneous
  Country: BG (occurrence: BG)
  Receive Date: 20161027
  Receipt Date: 20161027
  Transmission Date: 20170207
  Serious: Yes (Hospitalization)
  Sender: FDA-Public Use
  Company Number: BG-ASTRAZENECA-2016SF10485

PATIENT
  Age: 66 Year
  Sex: Female

DRUGS (8)
  1. ATORVASTATIN [Concomitant]
     Active Substance: ATORVASTATIN
  2. FUROSEMIDE. [Concomitant]
     Active Substance: FUROSEMIDE
  3. LERCANIDIPINE [Concomitant]
     Active Substance: LERCANIDIPINE
  4. METOPROLOL SUCCINATE. [Concomitant]
     Active Substance: METOPROLOL SUCCINATE
  5. ACETYLSALICYLIC ACID [Concomitant]
     Active Substance: ASPIRIN
  6. PANTOPRAZOLE [Concomitant]
     Active Substance: PANTOPRAZOLE SODIUM
  7. BRILIQUE [Suspect]
     Active Substance: TICAGRELOR
     Route: 048
  8. ZOFENOPRIL [Concomitant]
     Active Substance: ZOFENOPRIL

REACTIONS (3)
  - Gastrointestinal bacterial infection [Unknown]
  - Extravasation blood [Unknown]
  - Petechiae [Unknown]
